FAERS Safety Report 14948306 (Version 1)
Quarter: 2018Q2

REPORT INFORMATION
  Report Type: Spontaneous
  Country: US (occurrence: US)
  Receive Date: 20180508
  Receipt Date: 20180508
  Transmission Date: 20180711
  Serious: No
  Sender: FDA-Public Use
  Company Number: None

PATIENT
  Age: 64 Year
  Sex: Male
  Weight: 81.24 kg

DRUGS (3)
  1. DEXAMETHASONE. [Suspect]
     Active Substance: DEXAMETHASONE
     Dates: end: 20180420
  2. LENALIDOMIDE (CC-5013) [Suspect]
     Active Substance: LENALIDOMIDE
     Dates: end: 20180423
  3. VELCADE [Suspect]
     Active Substance: BORTEZOMIB
     Dates: end: 20180419

REACTIONS (3)
  - Pain [None]
  - Herpes zoster [None]
  - Peripheral swelling [None]

NARRATIVE: CASE EVENT DATE: 20180507
